FAERS Safety Report 4283203-9 (Version None)
Quarter: 2004Q1

REPORT INFORMATION
  Report Type: 
  Country: None (occurrence: None)
  Receive Date: 20040129
  Receipt Date: 20040115
  Transmission Date: 20041129
  Serious: Yes (Hospitalization)
  Sender: FDA-Public Use
  Company Number: 2004-06562

PATIENT
  Age: 21 Year
  Sex: Male

DRUGS (3)
  1. ADEFOVIR DIPIVOXIL KIT [Suspect]
     Indication: HEPATITIS B
     Dosage: 10 MG QD PO
     Route: 048
     Dates: start: 20030509, end: 20031120
  2. BLINDED STUDY DRUG [Suspect]
     Dates: start: 20031121
  3. BLINDED STUDY DRUG [Suspect]
     Dates: start: 20030213, end: 20030508

REACTIONS (2)
  - CONDITION AGGRAVATED [None]
  - HEPATITIS B [None]
